FAERS Safety Report 6197807-X (Version None)
Quarter: 2009Q2

REPORT INFORMATION
  Report Type: 
  Country: None (occurrence: None)
  Receive Date: 20090521
  Receipt Date: 20090511
  Transmission Date: 20091009
  Serious: Yes (Hospitalization)
  Sender: FDA-Public Use
  Company Number: DE-AMGEN-UK346382

PATIENT
  Sex: Female

DRUGS (4)
  1. NEULASTA [Suspect]
     Indication: CHEMOTHERAPY
     Route: 058
     Dates: start: 20071012, end: 20071012
  2. CYCLOPHOSPHAMIDE [Concomitant]
     Route: 042
     Dates: end: 20071011
  3. ADRIAMYCIN RDF [Concomitant]
     Route: 042
     Dates: end: 20071011
  4. DOCETAXEL [Concomitant]
     Route: 042
     Dates: end: 20071011

REACTIONS (3)
  - CATHETER RELATED INFECTION [None]
  - CATHETER REMOVAL [None]
  - SOFT TISSUE INFECTION [None]
